FAERS Safety Report 7759695-7 (Version None)
Quarter: 2011Q3

REPORT INFORMATION
  Report Type: 
  Country: None (occurrence: None)
  Receive Date: 20110915
  Receipt Date: 20110909
  Transmission Date: 20111222
  Serious: Yes (Other)
  Sender: FDA-Public Use
  Company Number: 2011SP042753

PATIENT
  Age: 79 Year
  Sex: Female

DRUGS (7)
  1. MIRTAZAPINE [Suspect]
     Indication: PRODUCT USED FOR UNKNOWN INDICATION
  2. FUROSEMIDE [Concomitant]
  3. CITALOPRAM HYDROBROMIDE [Suspect]
     Indication: PRODUCT USED FOR UNKNOWN INDICATION
     Dosage: 20 MG, 10 MG; BID, 10 MG; QD
     Dates: start: 20110609, end: 20110701
  4. CITALOPRAM HYDROBROMIDE [Suspect]
     Indication: PRODUCT USED FOR UNKNOWN INDICATION
     Dosage: 20 MG, 10 MG; BID, 10 MG; QD
  5. CITALOPRAM HYDROBROMIDE [Suspect]
     Indication: PRODUCT USED FOR UNKNOWN INDICATION
     Dosage: 20 MG, 10 MG; BID, 10 MG; QD
     Dates: end: 20110608
  6. CANDESARTAN CILEXETIL [Concomitant]
  7. SIMVASTATIN [Concomitant]

REACTIONS (7)
  - FALL [None]
  - ABNORMAL DREAMS [None]
  - PALPITATIONS [None]
  - WITHDRAWAL SYNDROME [None]
  - NIGHTMARE [None]
  - DRUG INTOLERANCE [None]
  - HAND FRACTURE [None]
